FAERS Safety Report 6411798-5 (Version None)
Quarter: 2009Q4

REPORT INFORMATION
  Report Type: 
  Country: None (occurrence: None)
  Receive Date: 20091023
  Receipt Date: 20091021
  Transmission Date: 20100525
  Serious: Yes (Other)
  Sender: FDA-Public Use
  Company Number: US-BRISTOL-MYERS SQUIBB COMPANY-14826002

PATIENT
  Age: 86 Year
  Sex: Female

DRUGS (2)
  1. GLUCOPHAGE [Suspect]
  2. INSULIN GLARGINE [Suspect]
     Dosage: DURATION OF THERAPY: 2YRS AGO

REACTIONS (1)
  - MACULAR DEGENERATION [None]
